FAERS Safety Report 7348082-1 (Version None)
Quarter: 2011Q1

REPORT INFORMATION
  Report Type: 
  Country: None (occurrence: None)
  Receive Date: 20110311
  Receipt Date: 20110225
  Transmission Date: 20110831
  Serious: Yes (Hospitalization, Other)
  Sender: FDA-Public Use
  Company Number: US-BAYER-2011-022036

PATIENT
  Sex: Female
  Weight: 84.354 kg

DRUGS (14)
  1. XANAX [Concomitant]
  2. ACETAMINOPHEN AND OXYCODONE HCL [Concomitant]
  3. KEFLEX [Concomitant]
  4. ACETAMINOPHEN AND HYDROCODONE BITARTRATE [Concomitant]
  5. TRAMADOL HCL [Concomitant]
  6. IBUPROFEN [Concomitant]
  7. YASMIN [Suspect]
  8. ALLEGRA [Concomitant]
  9. LORAZEPAM [Concomitant]
  10. METHYLPREDNISOLONE [Concomitant]
  11. PROZAC [Concomitant]
  12. PROMETHAZINE [Concomitant]
  13. CEPHALEXIN [Concomitant]
  14. ACETAMINOPHEN W/ PROPOXYPHENE HCL [Concomitant]

REACTIONS (13)
  - POST PROCEDURAL COMPLICATION [None]
  - PULMONARY EMBOLISM [None]
  - DYSPNOEA [None]
  - PLEURITIC PAIN [None]
  - TACHYCARDIA [None]
  - ANAEMIA [None]
  - LUNG NEOPLASM [None]
  - LOSS OF CONSCIOUSNESS [None]
  - CHEST PAIN [None]
  - ATRIAL FIBRILLATION [None]
  - SCAR [None]
  - BASEDOW'S DISEASE [None]
  - PRESYNCOPE [None]
